FAERS Safety Report 23408938 (Version 2)
Quarter: 2024Q2

REPORT INFORMATION
  Report Type: Other
  Country: EG (occurrence: None)
  Receive Date: 20240117
  Receipt Date: 20240606
  Transmission Date: 20240715
  Serious: No
  Sender: FDA-Public Use
  Company Number: EG-ROCHE-3492328

PATIENT
  Age: 35 Year
  Sex: Female
  Weight: 56 kg

DRUGS (1)
  1. OCREVUS [Suspect]
     Active Substance: OCRELIZUMAB
     Indication: Multiple sclerosis
     Route: 042
     Dates: start: 20220515

REACTIONS (3)
  - Multiple sclerosis [Recovering/Resolving]
  - Tuberculosis [Recovered/Resolved]
  - Hepatic enzyme increased [Recovered/Resolved]
